FAERS Safety Report 20677689 (Version 1)
Quarter: 2022Q2

REPORT INFORMATION
  Report Type: Spontaneous
  Country: US (occurrence: None)
  Receive Date: 20220406
  Receipt Date: 20220406
  Transmission Date: 20220721
  Serious: No
  Sender: FDA-Public Use
  Company Number: 2022A103429

PATIENT
  Sex: Female
  Weight: 83.5 kg

DRUGS (4)
  1. CRESTOR [Suspect]
     Active Substance: ROSUVASTATIN CALCIUM
     Route: 048
  2. SUDAFED [Concomitant]
     Active Substance: PSEUDOEPHEDRINE HYDROCHLORIDE
     Route: 048
  3. HYDROCHLOROTHIAZIDE [Concomitant]
     Active Substance: HYDROCHLOROTHIAZIDE
  4. CAPTOPRIL [Concomitant]
     Active Substance: CAPTOPRIL

REACTIONS (2)
  - Drooling [Not Recovered/Not Resolved]
  - Salivary hypersecretion [Not Recovered/Not Resolved]
